FAERS Safety Report 21497667 (Version 3)
Quarter: 2022Q4

REPORT INFORMATION
  Report Type: Spontaneous
  Country: US (occurrence: US)
  Receive Date: 20221024
  Receipt Date: 20221122
  Transmission Date: 20230113
  Serious: No
  Sender: FDA-Public Use
  Company Number: US-EXELIXIS-CABO-22057032

PATIENT
  Age: 50 Year
  Sex: Male

DRUGS (4)
  1. OPDIVO [Suspect]
     Active Substance: NIVOLUMAB
     Indication: Malignant connective tissue neoplasm
     Route: 065
     Dates: start: 20220926
  2. OPDIVO [Suspect]
     Active Substance: NIVOLUMAB
     Indication: Soft tissue sarcoma
  3. CABOMETYX [Suspect]
     Active Substance: CABOZANTINIB S-MALATE
     Indication: Malignant connective tissue neoplasm
     Route: 065
     Dates: start: 20220909
  4. CABOMETYX [Suspect]
     Active Substance: CABOZANTINIB S-MALATE
     Indication: Soft tissue sarcoma
     Route: 065
     Dates: start: 20220926

REACTIONS (11)
  - Hyperaesthesia teeth [Not Recovered/Not Resolved]
  - Onychalgia [Unknown]
  - Nasal dryness [Not Recovered/Not Resolved]
  - Rhinorrhoea [Unknown]
  - Hyperkeratosis [Unknown]
  - Rhinalgia [Not Recovered/Not Resolved]
  - Dry skin [Unknown]
  - Nausea [Not Recovered/Not Resolved]
  - Off label use [Unknown]
  - Taste disorder [Not Recovered/Not Resolved]
  - Blood pressure increased [Not Recovered/Not Resolved]
